FAERS Safety Report 23452933 (Version 3)
Quarter: 2024Q1

REPORT INFORMATION
  Report Type: Spontaneous
  Country: FR (occurrence: FR)
  Receive Date: 20240129
  Receipt Date: 20240227
  Transmission Date: 20240409
  Serious: Yes (Hospitalization, Disabling, Other)
  Sender: FDA-Public Use
  Company Number: FR-THERAMEX-2023002551

PATIENT
  Sex: Female

DRUGS (45)
  1. TRAMADOL [Suspect]
     Active Substance: TRAMADOL\TRAMADOL HYDROCHLORIDE
     Indication: Pain
     Dosage: REDUCED HER TRAMADOL TREATMENT TO 2 UNITS A DAY
     Route: 065
     Dates: start: 20220414
  2. TRAMADOL [Suspect]
     Active Substance: TRAMADOL\TRAMADOL HYDROCHLORIDE
     Indication: Pain
     Route: 065
     Dates: start: 20170404
  3. TRAMADOL [Suspect]
     Active Substance: TRAMADOL\TRAMADOL HYDROCHLORIDE
     Indication: Pain
     Route: 065
     Dates: start: 20170404
  4. CYPROTERONE [Suspect]
     Active Substance: CYPROTERONE
     Indication: Product used for unknown indication
     Dosage: CYPROT?RONE, 50 MG, MYLAN
     Route: 065
     Dates: start: 20140319
  5. CYPROTERONE [Suspect]
     Active Substance: CYPROTERONE
     Indication: Product used for unknown indication
     Route: 065
     Dates: start: 20140505
  6. CYPROTERONE [Suspect]
     Active Substance: CYPROTERONE
     Indication: Product used for unknown indication
     Route: 065
     Dates: start: 20150307
  7. CYPROTERONE [Suspect]
     Active Substance: CYPROTERONE
     Indication: Product used for unknown indication
     Route: 065
     Dates: start: 20130202
  8. CYPROTERONE [Suspect]
     Active Substance: CYPROTERONE
     Indication: Product used for unknown indication
     Route: 065
     Dates: start: 20141006
  9. CYPROTERONE [Suspect]
     Active Substance: CYPROTERONE
     Indication: Product used for unknown indication
     Route: 065
     Dates: start: 20140319
  10. CYPROTERONE [Suspect]
     Active Substance: CYPROTERONE
     Indication: Product used for unknown indication
     Dosage: CYPROT?RONE, 50 MG, MERCK
     Route: 065
     Dates: start: 20130109
  11. CYPROTERONE [Suspect]
     Active Substance: CYPROTERONE
     Indication: Product used for unknown indication
     Route: 065
     Dates: start: 20160602
  12. CYPROTERONE [Suspect]
     Active Substance: CYPROTERONE
     Indication: Product used for unknown indication
     Route: 065
     Dates: start: 20140319
  13. CYPROTERONE [Suspect]
     Active Substance: CYPROTERONE
     Indication: Product used for unknown indication
     Route: 065
     Dates: start: 20160711
  14. CYPROTERONE [Suspect]
     Active Substance: CYPROTERONE
     Indication: Product used for unknown indication
     Route: 065
     Dates: start: 20150720
  15. CYPROTERONE [Suspect]
     Active Substance: CYPROTERONE
     Indication: Product used for unknown indication
     Route: 065
     Dates: start: 20150420
  16. CYPROTERONE [Suspect]
     Active Substance: CYPROTERONE
     Indication: Product used for unknown indication
     Dosage: CYPROT?RONE, 50 MG, SANDOZ
     Route: 065
     Dates: start: 20130109
  17. CYPROTERONE [Suspect]
     Active Substance: CYPROTERONE
     Indication: Product used for unknown indication
     Route: 065
     Dates: start: 20140709
  18. CYPROTERONE [Suspect]
     Active Substance: CYPROTERONE
     Indication: Product used for unknown indication
     Route: 065
     Dates: start: 20131202
  19. CYPROTERONE [Suspect]
     Active Substance: CYPROTERONE
     Indication: Product used for unknown indication
     Route: 065
     Dates: start: 20140331
  20. CYPROTERONE ACETATE [Suspect]
     Active Substance: CYPROTERONE ACETATE
     Indication: Polycystic ovarian syndrome
     Route: 065
     Dates: start: 20081126
  21. CYPROTERONE ACETATE [Suspect]
     Active Substance: CYPROTERONE ACETATE
     Indication: Polycystic ovarian syndrome
     Route: 065
     Dates: start: 20090218
  22. CYPROTERONE ACETATE [Suspect]
     Active Substance: CYPROTERONE ACETATE
     Indication: Polycystic ovarian syndrome
     Route: 065
     Dates: start: 20080903
  23. CYPROTERONE ACETATE [Suspect]
     Active Substance: CYPROTERONE ACETATE
     Indication: Polycystic ovarian syndrome
     Route: 065
     Dates: start: 20100726
  24. CYPROTERONE ACETATE [Suspect]
     Active Substance: CYPROTERONE ACETATE
     Indication: Polycystic ovarian syndrome
     Dosage: ANDROCUR BAYER
     Route: 065
     Dates: start: 20010611
  25. CYPROTERONE ACETATE [Suspect]
     Active Substance: CYPROTERONE ACETATE
     Indication: Polycystic ovarian syndrome
     Route: 065
     Dates: start: 20100901
  26. CYPROTERONE ACETATE [Suspect]
     Active Substance: CYPROTERONE ACETATE
     Indication: Polycystic ovarian syndrome
     Route: 065
     Dates: start: 20010921
  27. CYPROTERONE ACETATE [Suspect]
     Active Substance: CYPROTERONE ACETATE
     Indication: Polycystic ovarian syndrome
     Route: 065
     Dates: start: 20081001
  28. CYPROTERONE ACETATE [Suspect]
     Active Substance: CYPROTERONE ACETATE
     Indication: Polycystic ovarian syndrome
     Route: 065
     Dates: start: 20110507
  29. CYPROTERONE ACETATE [Suspect]
     Active Substance: CYPROTERONE ACETATE
     Indication: Polycystic ovarian syndrome
     Route: 065
     Dates: start: 20090318
  30. CYPROTERONE ACETATE [Suspect]
     Active Substance: CYPROTERONE ACETATE
     Indication: Polycystic ovarian syndrome
     Route: 065
     Dates: start: 20100217
  31. CYPROTERONE ACETATE [Suspect]
     Active Substance: CYPROTERONE ACETATE
     Indication: Polycystic ovarian syndrome
     Route: 065
     Dates: start: 20021011
  32. CYPROTERONE ACETATE [Suspect]
     Active Substance: CYPROTERONE ACETATE
     Indication: Polycystic ovarian syndrome
     Route: 065
     Dates: start: 20110328
  33. CYPROTERONE ACETATE [Suspect]
     Active Substance: CYPROTERONE ACETATE
     Indication: Polycystic ovarian syndrome
     Route: 065
     Dates: start: 20081022
  34. CYPROTERONE ACETATE [Suspect]
     Active Substance: CYPROTERONE ACETATE
     Indication: Polycystic ovarian syndrome
     Route: 065
     Dates: start: 20100402
  35. CYPROTERONE ACETATE [Suspect]
     Active Substance: CYPROTERONE ACETATE
     Indication: Polycystic ovarian syndrome
     Route: 065
     Dates: start: 20090420
  36. CYPROTERONE ACETATE [Suspect]
     Active Substance: CYPROTERONE ACETATE
     Indication: Polycystic ovarian syndrome
     Route: 065
     Dates: start: 20020912
  37. CYPROTERONE ACETATE [Suspect]
     Active Substance: CYPROTERONE ACETATE
     Indication: Polycystic ovarian syndrome
     Route: 048
     Dates: start: 20170714
  38. NOMEGESTROL ACETATE [Suspect]
     Active Substance: NOMEGESTROL ACETATE
     Indication: Ovarian cyst
     Dosage: LUTENYL TEVA
     Route: 065
     Dates: start: 19980128
  39. CYPROTERONE [Suspect]
     Active Substance: CYPROTERONE
     Indication: Product used for unknown indication
     Route: 065
     Dates: start: 20130202
  40. CYPROTERONE [Suspect]
     Active Substance: CYPROTERONE
     Indication: Product used for unknown indication
     Route: 065
     Dates: start: 20130109
  41. CYPROTERONE [Suspect]
     Active Substance: CYPROTERONE
     Indication: Product used for unknown indication
     Route: 065
     Dates: start: 20141006
  42. CYPROTERONE [Suspect]
     Active Substance: CYPROTERONE
     Indication: Product used for unknown indication
     Route: 065
     Dates: start: 20140319
  43. ESTRADIOL [Concomitant]
     Active Substance: ESTRADIOL
     Indication: Product used for unknown indication
     Route: 048
  44. CYPROTERONE [Suspect]
     Active Substance: CYPROTERONE
     Indication: Product used for unknown indication
     Route: 065
     Dates: start: 20141222
  45. CYPROTERONE [Suspect]
     Active Substance: CYPROTERONE
     Indication: Product used for unknown indication
     Dosage: CYPROT?RONE, 50 MG, ZENTIVA
     Route: 065
     Dates: start: 20140319

REACTIONS (29)
  - Meningioma [Recovered/Resolved with Sequelae]
  - Back pain [Unknown]
  - Hyperacusis [Unknown]
  - Depression [Unknown]
  - Libido decreased [Unknown]
  - Irritability [Not Recovered/Not Resolved]
  - Disability [Unknown]
  - Impaired work ability [Unknown]
  - Drug dependence [Unknown]
  - Poor quality sleep [Unknown]
  - Face oedema [Unknown]
  - Muscle atrophy [Unknown]
  - Facial wasting [Unknown]
  - Pain [Unknown]
  - Dehiscence [Unknown]
  - Drug abuse [Unknown]
  - Peritoneal disorder [Unknown]
  - Fatigue [Not Recovered/Not Resolved]
  - Insomnia [Unknown]
  - Disturbance in attention [Not Recovered/Not Resolved]
  - Headache [Not Recovered/Not Resolved]
  - Asthenia [Not Recovered/Not Resolved]
  - Arthralgia [Not Recovered/Not Resolved]
  - Sick leave [Unknown]
  - Apathy [Unknown]
  - Depressed mood [Unknown]
  - Pollakiuria [Unknown]
  - Cystitis [Unknown]
  - Back pain [Not Recovered/Not Resolved]

NARRATIVE: CASE EVENT DATE: 20160101
